FAERS Safety Report 19614913 (Version 4)
Quarter: 2022Q1

REPORT INFORMATION
  Report Type: Spontaneous
  Country: ES (occurrence: ES)
  Receive Date: 20210727
  Receipt Date: 20220106
  Transmission Date: 20220423
  Serious: Yes (Life-Threatening, Hospitalization, Other)
  Sender: FDA-Public Use
  Company Number: ES-MACLEODS PHARMA UK LTD-MAC2021029893

PATIENT
  Age: 30 Year
  Sex: Male

DRUGS (7)
  1. SILDENAFIL [Suspect]
     Active Substance: SILDENAFIL
     Indication: Erectile dysfunction
     Dosage: UNK UNK, QD, UPTO 200 MG, HIGH DOSE
     Route: 048
  2. SILDENAFIL [Suspect]
     Active Substance: SILDENAFIL
     Dosage: 50 MILLIGRAM, QD, PILLS
     Route: 048
  3. SILDENAFIL [Suspect]
     Active Substance: SILDENAFIL
     Dosage: 200 MG, QD (4 TIMES THE RECOMMENDED DOSE)
     Route: 065
  4. LEVETIRACETAM [Suspect]
     Active Substance: LEVETIRACETAM
     Indication: Status epilepticus
     Dosage: 1000 MILLIGRAM
     Route: 065
  5. LACOSAMIDE [Suspect]
     Active Substance: LACOSAMIDE
     Indication: Status epilepticus
     Dosage: 200 MILLIGRAM
     Route: 065
  6. DIAZEPAM [Suspect]
     Active Substance: DIAZEPAM
     Indication: Status epilepticus
     Dosage: UNK
     Route: 040
  7. LEVETIRACETAM [Concomitant]
     Active Substance: LEVETIRACETAM
     Indication: Status epilepticus
     Dosage: 1000 MILLIGRAM
     Route: 065

REACTIONS (10)
  - Status epilepticus [Recovered/Resolved]
  - Drug ineffective [Unknown]
  - Bradyphrenia [Unknown]
  - Myoclonus [Unknown]
  - Ocular discomfort [Unknown]
  - Self-medication [Unknown]
  - Generalised tonic-clonic seizure [Recovering/Resolving]
  - Prescription drug used without a prescription [Unknown]
  - Intentional overdose [Unknown]
  - Overdose [Unknown]
